FAERS Safety Report 20947258 (Version 1)
Quarter: 2022Q2

REPORT INFORMATION
  Report Type: Spontaneous
  Country: US (occurrence: US)
  Receive Date: 20220610
  Receipt Date: 20220610
  Transmission Date: 20220721
  Serious: Yes (Other)
  Sender: FDA-Public Use
  Company Number: US-ALLERGAN-2219060US

PATIENT
  Sex: Male

DRUGS (4)
  1. BOTOX [Suspect]
     Active Substance: ONABOTULINUMTOXINA
     Indication: Salivary hypersecretion
     Dosage: UNK, SINGLE
  2. BOTOX [Suspect]
     Active Substance: ONABOTULINUMTOXINA
     Indication: Laryngeal cleft
     Dosage: UNK, SINGLE
  3. DEVICE [Suspect]
     Active Substance: DEVICE
     Indication: Laryngeal cleft
     Dosage: 0.5 CC
  4. DEVICE [Suspect]
     Active Substance: DEVICE
     Indication: Salivary hypersecretion

REACTIONS (2)
  - Apnoeic attack [Unknown]
  - Off label use [Unknown]
